FAERS Safety Report 14045453 (Version 2)
Quarter: 2017Q4

REPORT INFORMATION
  Report Type: Spontaneous
  Country: US (occurrence: US)
  Receive Date: 20171005
  Receipt Date: 20171107
  Transmission Date: 20180321
  Serious: No
  Sender: FDA-Public Use
  Company Number: US-CELGENEUS-USA-20170909077

PATIENT
  Age: 80 Year
  Sex: Female
  Weight: 72.64 kg

DRUGS (2)
  1. DEXAMETHASONE. [Suspect]
     Active Substance: DEXAMETHASONE
     Indication: PRODUCT USED FOR UNKNOWN INDICATION
     Route: 065
  2. REVLIMID [Suspect]
     Active Substance: LENALIDOMIDE
     Indication: PLASMA CELL MYELOMA
     Dosage: 10 MILLIGRAM
     Route: 048
     Dates: start: 20160127

REACTIONS (6)
  - Somnolence [Unknown]
  - Seasonal allergy [Unknown]
  - Diarrhoea [Unknown]
  - Fatigue [Unknown]
  - Sinusitis [Unknown]
  - Unevaluable event [Unknown]

NARRATIVE: CASE EVENT DATE: 201601
